FAERS Safety Report 8565218-5 (Version None)
Quarter: 2012Q3

REPORT INFORMATION
  Report Type: 
  Country: None (occurrence: None)
  Receive Date: 20120803
  Receipt Date: 20120725
  Transmission Date: 20120928
  Serious: Yes (Hospitalization, Congenital Anomaly)
  Sender: FDA-Public Use
  Company Number: US-GLAXOSMITHKLINE-A0988124A

PATIENT
  Sex: Female
  Weight: 2 kg

DRUGS (3)
  1. METROGEL [Concomitant]
  2. PAXIL [Suspect]
     Indication: DEPRESSION
     Dosage: 40MG PER DAY
     Route: 064
     Dates: start: 20030801, end: 20040112
  3. PAROXETINE HCL [Suspect]
     Indication: DEPRESSION
     Route: 064
     Dates: start: 20030901, end: 20040112

REACTIONS (5)
  - CONGENITAL CYST [None]
  - CEREBRAL INFARCTION [None]
  - DRUG WITHDRAWAL SYNDROME NEONATAL [None]
  - CLONUS [None]
  - FOETAL EXPOSURE DURING PREGNANCY [None]
